FAERS Safety Report 5777977-5 (Version None)
Quarter: 2008Q2

REPORT INFORMATION
  Report Type: 
  Country: None (occurrence: None)
  Receive Date: 20080617
  Receipt Date: 20080602
  Transmission Date: 20081010
  Serious: Yes (Death)
  Sender: FDA-Public Use
  Company Number: 08-199

PATIENT
  Sex: Male

DRUGS (1)
  1. FAZACLO ODT [Suspect]
     Indication: DRUG USE FOR UNKNOWN INDICATION
     Dosage: 200 MG DAILY; PO
     Route: 048

REACTIONS (1)
  - OVERDOSE [None]
